FAERS Safety Report 8326485-6 (Version None)
Quarter: 2012Q2

REPORT INFORMATION
  Report Type: 
  Country: None (occurrence: None)
  Receive Date: 20120501
  Receipt Date: 20120426
  Transmission Date: 20120825
  Serious: Yes (Other)
  Sender: FDA-Public Use
  Company Number: US-PFIZER INC-2012104134

PATIENT
  Sex: Male
  Weight: 72.562 kg

DRUGS (4)
  1. GABAPENTIN [Suspect]
     Dosage: 800 MG, 4X/DAY
     Route: 048
     Dates: start: 20010101
  2. SERTRALINE [Concomitant]
     Indication: DEPRESSION
     Dosage: UNK
  3. CELEBREX [Suspect]
     Indication: INFLAMMATION
     Dosage: 200 MG, 1X/DAY
     Route: 048
     Dates: start: 20010101
  4. OXYCODONE [Concomitant]
     Dosage: 30 MG, UNK

REACTIONS (11)
  - KNEE ARTHROPLASTY [None]
  - BLOOD CHOLESTEROL INCREASED [None]
  - LIMB OPERATION [None]
  - BODY HEIGHT DECREASED [None]
  - HYPOAESTHESIA [None]
  - CARTILAGE GRAFT [None]
  - KNEE OPERATION [None]
  - LIMB CRUSHING INJURY [None]
  - ANKLE OPERATION [None]
  - BACK DISORDER [None]
  - WRIST FRACTURE [None]
